FAERS Safety Report 23617572 (Version 1)
Quarter: 2024Q1

REPORT INFORMATION
  Report Type: Spontaneous
  Country: US (occurrence: None)
  Receive Date: 20240310
  Receipt Date: 20240310
  Transmission Date: 20240410
  Serious: Yes (Life-Threatening, Hospitalization)
  Sender: FDA-Public Use
  Company Number: None

PATIENT
  Age: 70 Year
  Sex: Female
  Weight: 66.15 kg

DRUGS (5)
  1. ROSUVASTATIN [Suspect]
     Active Substance: ROSUVASTATIN
     Indication: Blood cholesterol increased
  2. SIMVASTATIN [Suspect]
     Active Substance: SIMVASTATIN
  3. AZOR (Amlodipine and olmesartan medoxomil tablets 5mg/20mg [Concomitant]
  4. XARELTO [Concomitant]
     Active Substance: RIVAROXABAN
  5. DEVICE [Concomitant]
     Active Substance: DEVICE

REACTIONS (4)
  - Fatigue [None]
  - Therapy cessation [None]
  - Heart rate decreased [None]
  - Atrioventricular block [None]

NARRATIVE: CASE EVENT DATE: 20231023
